FAERS Safety Report 24921482 (Version 1)
Quarter: 2025Q1

REPORT INFORMATION
  Report Type: Spontaneous
  Country: RU (occurrence: RU)
  Receive Date: 20250204
  Receipt Date: 20250204
  Transmission Date: 20250408
  Serious: Yes (Other)
  Sender: REGENERON
  Company Number: RU-BAYER-2025A013419

PATIENT
  Sex: Female

DRUGS (1)
  1. EYLEA [Suspect]
     Active Substance: AFLIBERCEPT
     Indication: Neovascular age-related macular degeneration
     Route: 031

REACTIONS (2)
  - Subretinal fluid [Unknown]
  - Detachment of retinal pigment epithelium [Unknown]
